FAERS Safety Report 6193873-6 (Version None)
Quarter: 2009Q2

REPORT INFORMATION
  Report Type: 
  Country: None (occurrence: None)
  Receive Date: 20090518
  Receipt Date: 20090515
  Transmission Date: 20091009
  Serious: Yes (Death)
  Sender: FDA-Public Use
  Company Number: US-PFIZER INC-2009196499

PATIENT
  Sex: Female

DRUGS (1)
  1. VORICONAZOLE [Suspect]
     Dosage: 200 MG, 2X/DAY
     Route: 048

REACTIONS (1)
  - DEATH [None]
